FAERS Safety Report 9423063 (Version 1)
Quarter: 2013Q3

REPORT INFORMATION
  Report Type: Spontaneous
  Country: FR (occurrence: FR)
  Receive Date: 20130726
  Receipt Date: 20130726
  Transmission Date: 20140515
  Serious: Yes (Hospitalization)
  Sender: FDA-Public Use
  Company Number: FR-GLAXOSMITHKLINE-B0908569A

PATIENT
  Age: 48 Year
  Sex: Female

DRUGS (3)
  1. LAMICTAL [Suspect]
     Indication: EPILEPSY
     Route: 048
     Dates: start: 20130329, end: 201305
  2. TEGRETOL [Suspect]
     Indication: EPILEPSY
     Route: 048
     Dates: start: 20130329, end: 20130510
  3. ALEPSAL [Concomitant]
     Indication: EPILEPSY

REACTIONS (12)
  - Drug reaction with eosinophilia and systemic symptoms [Recovering/Resolving]
  - Eosinophilia [Recovered/Resolved]
  - Rash pruritic [Recovering/Resolving]
  - Pyrexia [Unknown]
  - Tachycardia [Unknown]
  - Inflammation [Unknown]
  - Hepatocellular injury [Recovering/Resolving]
  - Cholestasis [Recovering/Resolving]
  - Human herpesvirus 6 infection [Unknown]
  - Pericardial effusion [Unknown]
  - Blister [Recovering/Resolving]
  - Impetigo [Recovered/Resolved]
